FAERS Safety Report 9241965 (Version 4)
Quarter: 2013Q2

REPORT INFORMATION
  Report Type: Spontaneous
  Country: US (occurrence: US)
  Receive Date: 20130419
  Receipt Date: 20130523
  Transmission Date: 20140414
  Serious: No
  Sender: FDA-Public Use
  Company Number: US-PFIZER INC-2013069557

PATIENT
  Age: 71 Year
  Sex: Female
  Weight: 79 kg

DRUGS (4)
  1. TIKOSYN [Suspect]
     Indication: ATRIAL FIBRILLATION
     Dosage: 500 UG, 2X/DAY
  2. TIKOSYN [Suspect]
     Dosage: 500 UG, 2X/DAY
     Route: 048
     Dates: start: 201210
  3. DIGOXIN [Concomitant]
     Dosage: 125 UG, 1X/DAY
  4. COUMADINE [Concomitant]
     Dosage: 5 MG, 1X/DAY

REACTIONS (4)
  - Paraesthesia [Not Recovered/Not Resolved]
  - Vein disorder [Unknown]
  - Drug ineffective [Unknown]
  - Product physical issue [Unknown]
